FAERS Safety Report 5158959-3 (Version None)
Quarter: 2006Q4

REPORT INFORMATION
  Report Type: 
  Country: None (occurrence: None)
  Receive Date: 20061128
  Receipt Date: 20061122
  Transmission Date: 20070319
  Serious: Yes (Life-Threatening)
  Sender: FDA-Public Use
  Company Number: ES-BRISTOL-MYERS SQUIBB COMPANY-13586680

PATIENT
  Age: 60 Year
  Sex: Female

DRUGS (4)
  1. VEPESID [Suspect]
     Dates: start: 20060213, end: 20060215
  2. CARMUSTINE [Suspect]
     Dates: start: 20060213, end: 20060213
  3. GENOXAL [Suspect]
     Dates: start: 20060213, end: 20060216
  4. UROMITEXAN [Concomitant]
     Route: 042
     Dates: start: 20060213, end: 20060216

REACTIONS (1)
  - PANCYTOPENIA [None]
